FAERS Safety Report 5596865-0 (Version None)
Quarter: 2008Q1

REPORT INFORMATION
  Report Type: 
  Country: None (occurrence: None)
  Receive Date: 20080119
  Receipt Date: 20080110
  Transmission Date: 20080703
  Serious: Yes (Other)
  Sender: FDA-Public Use
  Company Number: US-PFIZER INC-2008004157

PATIENT
  Sex: Male
  Weight: 99.8 kg

DRUGS (3)
  1. VIAGRA [Suspect]
     Indication: ERECTILE DYSFUNCTION
  2. VERAPAMIL [Concomitant]
     Indication: HYPERTENSION
  3. VITAMINS [Concomitant]

REACTIONS (2)
  - ERYTHEMA [None]
  - FLUSHING [None]
